FAERS Safety Report 4440296-3 (Version None)
Quarter: 2004Q3

REPORT INFORMATION
  Report Type: 
  Country: None (occurrence: None)
  Receive Date: 20040831
  Receipt Date: 20040831
  Transmission Date: 20050211
  Serious: Yes (Hospitalization)
  Sender: FDA-Public Use
  Company Number: None

PATIENT
  Age: 15 Year
  Sex: Male
  Weight: 66 kg

DRUGS (1)
  1. DOXYCYCLINE [Suspect]
     Indication: ACNE
     Dosage: 100 MG QD ORAL
     Route: 048
     Dates: start: 20040518, end: 20040524

REACTIONS (2)
  - ABDOMINAL PAIN UPPER [None]
  - WEIGHT DECREASED [None]
